FAERS Safety Report 6388049-3 (Version None)
Quarter: 2009Q4

REPORT INFORMATION
  Report Type: 
  Country: None (occurrence: None)
  Receive Date: 20091001
  Receipt Date: 20091001
  Transmission Date: 20100525
  Serious: No
  Sender: FDA-Public Use
  Company Number: None

PATIENT
  Age: 46 Year
  Sex: Female

DRUGS (1)
  1. LAMICTAL [Suspect]
     Dosage: 150 MG BID
     Dates: start: 20080601, end: 20090901

REACTIONS (9)
  - ANXIETY [None]
  - DEPRESSION [None]
  - DIZZINESS [None]
  - HEADACHE [None]
  - MENTAL IMPAIRMENT [None]
  - NAUSEA [None]
  - PRODUCT SUBSTITUTION ISSUE [None]
  - STRESS [None]
  - UNEVALUABLE EVENT [None]
